FAERS Safety Report 6249738-4 (Version None)
Quarter: 2009Q2

REPORT INFORMATION
  Report Type: 
  Country: None (occurrence: None)
  Receive Date: 20090624
  Receipt Date: 20090609
  Transmission Date: 20091009
  Serious: Yes (Other)
  Sender: FDA-Public Use
  Company Number: 8047848

PATIENT
  Age: 43 Year
  Sex: Female
  Weight: 100 kg

DRUGS (13)
  1. CERTOLIZUMAB PEGOL [Suspect]
     Indication: RHEUMATOID ARTHRITIS
     Dosage: 400 MG 1/2W SC
     Route: 058
     Dates: start: 20050531, end: 20060516
  2. CERTOLIZUMAB PEGOL [Suspect]
     Indication: RHEUMATOID ARTHRITIS
     Dosage: 400 MG 1/2W SC
     Route: 058
     Dates: start: 20060530, end: 20071113
  3. CERTOLIZUMAB PEGOL [Suspect]
     Indication: RHEUMATOID ARTHRITIS
     Dosage: 200 MG 1/2W SC
     Route: 058
     Dates: start: 20071127, end: 20080610
  4. CERTOLIZUMAB PEGOL [Suspect]
     Indication: RHEUMATOID ARTHRITIS
     Dosage: 200 MG 1/2W SC
     Route: 058
     Dates: start: 20080625, end: 20090414
  5. CERTOLIZUMAB PEGOL [Suspect]
     Indication: RHEUMATOID ARTHRITIS
     Dosage: 200 MG 1/2W SC
     Route: 058
     Dates: start: 20090526, end: 20090609
  6. METHOTREXATE [Concomitant]
  7. MELOXICAM [Concomitant]
  8. METHYLPREDNISOLON /00049601/ [Concomitant]
  9. LOGEST /00000701/ [Concomitant]
  10. OMEPRAZOLE /00661201/ [Concomitant]
  11. QUINAPRIL [Concomitant]
  12. SYMBICORT [Concomitant]
  13. FERROUS SULFATE TAB [Concomitant]

REACTIONS (6)
  - ASTHMA [None]
  - BRONCHITIS [None]
  - LUNG DISORDER [None]
  - PLEURAL DISORDER [None]
  - PNEUMONIA [None]
  - TUBERCULOSIS TEST POSITIVE [None]
